FAERS Safety Report 10405788 (Version 1)
Quarter: 2014Q3

REPORT INFORMATION
  Report Type: Spontaneous
  Country: IN (occurrence: IN)
  Receive Date: 20140825
  Receipt Date: 20140825
  Transmission Date: 20150326
  Serious: Yes (Other)
  Sender: FDA-Public Use
  Company Number: PHHY2014IN104059

PATIENT
  Age: 60 Year
  Sex: Male

DRUGS (2)
  1. IMATINIB [Suspect]
     Active Substance: IMATINIB
     Dosage: 300 MG,PER DAY
     Dates: end: 201304
  2. IMATINIB [Suspect]
     Active Substance: IMATINIB
     Dosage: 400 MG, PER DAY

REACTIONS (9)
  - Myelodysplastic syndrome [Unknown]
  - Platelet count decreased [Unknown]
  - Pancytopenia [Unknown]
  - Megakaryocytes abnormal [Unknown]
  - Haemoglobin decreased [Unknown]
  - Red blood cell abnormality [Unknown]
  - Blast crisis in myelogenous leukaemia [Unknown]
  - Haemorrhage [Unknown]
  - Malignant neoplasm progression [Unknown]
